FAERS Safety Report 12841786 (Version 2)
Quarter: 2017Q1

REPORT INFORMATION
  Report Type: Spontaneous
  Country: US (occurrence: US)
  Receive Date: 20161012
  Receipt Date: 20170124
  Transmission Date: 20170428
  Serious: No
  Sender: FDA-Public Use
  Company Number: US-TEVA-701707USA

PATIENT
  Age: 52 Year
  Sex: Female

DRUGS (10)
  1. ESTRACE [Concomitant]
     Active Substance: ESTRADIOL
     Dosage: 2 MILLIGRAM DAILY;
  2. MS CONTIN [Concomitant]
     Active Substance: MORPHINE SULFATE
     Dosage: 45 MILLIGRAM DAILY;
  3. IMITREX [Concomitant]
     Active Substance: SUMATRIPTAN SUCCINATE
     Dosage: 200 MILLIGRAM DAILY; 200 MG; AS REQUIRED
  4. MOBIC [Concomitant]
     Active Substance: MELOXICAM
     Dosage: 15 MILLIGRAM DAILY;
  5. SINEMET [Concomitant]
     Active Substance: CARBIDOPA\LEVODOPA
     Dosage: 25-250 MG; EVERY BED TIME
  6. TIZANIDINE. [Concomitant]
     Active Substance: TIZANIDINE
     Dosage: 6 MILLIGRAM DAILY;
  7. OMEPRAZOLE. [Concomitant]
     Active Substance: OMEPRAZOLE
     Dosage: 20 MILLIGRAM DAILY;
  8. NUVIGIL [Suspect]
     Active Substance: ARMODAFINIL
     Route: 065
  9. KLONOPIN [Concomitant]
     Active Substance: CLONAZEPAM
     Dosage: 4 MILLIGRAM DAILY;
  10. BENADRYL [Concomitant]
     Active Substance: DIPHENHYDRAMINE HYDROCHLORIDE
     Dosage: 40 MILLIGRAM DAILY; 40 MG; AS REQUIRED

REACTIONS (1)
  - Somnambulism [Unknown]
